FAERS Safety Report 13678825 (Version 4)
Quarter: 2017Q3

REPORT INFORMATION
  Report Type: Spontaneous
  Country: NZ (occurrence: NZ)
  Receive Date: 20170622
  Receipt Date: 20170724
  Transmission Date: 20171127
  Serious: Yes (Death)
  Sender: FDA-Public Use
  Company Number: NZ-B.I. PHARMACEUTICALS,INC./RIDGEFIELD-2017-BI-034449

PATIENT
  Sex: Female
  Weight: 61 kg

DRUGS (2)
  1. PRAXBIND [Suspect]
     Active Substance: IDARUCIZUMAB
     Indication: HAEMORRHAGE
     Route: 065
     Dates: start: 20170617, end: 20170618
  2. PRAXBIND [Suspect]
     Active Substance: IDARUCIZUMAB
     Route: 065
     Dates: start: 20170618

REACTIONS (7)
  - Activated partial thromboplastin time prolonged [Unknown]
  - General physical health deterioration [Unknown]
  - Incorrect dose administered [Unknown]
  - Coagulation time prolonged [Unknown]
  - Spindle cell sarcoma [Fatal]
  - Gastrointestinal haemorrhage [Fatal]
  - Thrombin time abnormal [Unknown]
